FAERS Safety Report 8603459-9 (Version None)
Quarter: 2012Q3

REPORT INFORMATION
  Report Type: 
  Country: None (occurrence: None)
  Receive Date: 20120806
  Receipt Date: 20120726
  Transmission Date: 20120928
  Serious: Yes (Other)
  Sender: FDA-Public Use
  Company Number: JP-2012-15462

PATIENT
  Sex: Male
  Weight: 62 kg

DRUGS (15)
  1. SAMSCA [Suspect]
     Indication: FLUID RETENTION
     Dosage: 7.5 MG MILLIGRAM(S), QAM, ORAL
     Route: 048
     Dates: start: 20120323, end: 20120327
  2. DIART (AZOSEMIDE) [Concomitant]
  3. ALLOPURINOL [Concomitant]
  4. METHYLCOBAL (MECOBALAMIN) [Concomitant]
  5. LANSOPRAZOLE [Concomitant]
  6. WARFARIN SODIUM [Concomitant]
  7. HANP (CARPERITIDE) [Concomitant]
  8. LASIX [Concomitant]
  9. LASIX [Concomitant]
  10. TORSEMIDE [Suspect]
     Indication: CARDIAC FAILURE
     Dosage: 8 MG MILLIGRAM(S), DAILY DOSE, ORAL
     Route: 048
     Dates: start: 20120323, end: 20120326
  11. LIVALO [Concomitant]
  12. LASIX [Concomitant]
  13. PREDOPA (DOPAMINE HYDROCHLORIDE) [Concomitant]
  14. AMIODARONE HCL [Concomitant]
  15. DOBUTREX [Concomitant]

REACTIONS (1)
  - BLOOD UREA INCREASED [None]
